FAERS Safety Report 10906930 (Version 1)
Quarter: 2015Q1

REPORT INFORMATION
  Report Type: Spontaneous
  Country: US (occurrence: US)
  Receive Date: 20150312
  Receipt Date: 20150312
  Transmission Date: 20150721
  Serious: Yes (Other)
  Sender: FDA-Public Use
  Company Number: US-ROCHE-1550194

PATIENT
  Sex: Female

DRUGS (8)
  1. KLONOPIN [Suspect]
     Active Substance: CLONAZEPAM
     Indication: ANXIETY
     Route: 065
  2. VALIUM [Suspect]
     Active Substance: DIAZEPAM
     Route: 065
  3. VALIUM [Suspect]
     Active Substance: DIAZEPAM
     Dosage: AT BEDTIME
     Route: 065
  4. LEVOTHYROXINE [Concomitant]
     Active Substance: LEVOTHYROXINE
     Indication: HYPOTHYROIDISM
     Dosage: TAKES ONCE A DAY FOR FIVE DAYS OUT OF SEVEN
     Route: 065
  5. LEVOTHYROXINE [Concomitant]
     Active Substance: LEVOTHYROXINE
     Dosage: TAKES THIS DOSE FOR TWO DAYS OUT OF SEVEN
     Route: 065
  6. KLONOPIN [Suspect]
     Active Substance: CLONAZEPAM
     Indication: INSOMNIA
     Route: 065
  7. KLONOPIN [Suspect]
     Active Substance: CLONAZEPAM
     Route: 065
  8. VALIUM [Suspect]
     Active Substance: DIAZEPAM
     Indication: PRODUCT USED FOR UNKNOWN INDICATION
     Route: 065

REACTIONS (8)
  - Cognitive disorder [Not Recovered/Not Resolved]
  - Fatigue [Recovering/Resolving]
  - Impaired driving ability [Recovering/Resolving]
  - Vision blurred [Recovering/Resolving]
  - Sedation [Unknown]
  - Amnesia [Recovering/Resolving]
  - Unevaluable event [Recovering/Resolving]
  - Gastrointestinal disorder [Recovering/Resolving]
